FAERS Safety Report 7313127-1 (Version None)
Quarter: 2011Q1

REPORT INFORMATION
  Report Type: 
  Country: None (occurrence: None)
  Receive Date: 20110215
  Receipt Date: 20110215
  Transmission Date: 20110831
  Serious: No
  Sender: FDA-Public Use
  Company Number: None

PATIENT
  Age: 66 Year
  Sex: Male
  Weight: 62.2 kg

DRUGS (2)
  1. WARFARIN [Suspect]
     Indication: INTRACARDIAC THROMBUS
     Dosage: MG PO
     Route: 048
     Dates: start: 20100823
  2. SITAGLIPTIN [Suspect]
     Indication: DIABETES MELLITUS
     Dosage: 50 MG EVERY DAY PO
     Route: 048
     Dates: start: 20100830

REACTIONS (2)
  - DRUG INTERACTION [None]
  - INTERNATIONAL NORMALISED RATIO INCREASED [None]
